FAERS Safety Report 12900474 (Version 1)
Quarter: 2016Q4

REPORT INFORMATION
  Report Type: Spontaneous
  Country: US (occurrence: US)
  Receive Date: 20161101
  Receipt Date: 20161101
  Transmission Date: 20170207
  Serious: Yes (Hospitalization, Other)
  Sender: FDA-Public Use
  Company Number: US-GLAXOSMITHKLINE-CHPA2013US005721

PATIENT
  Sex: Male

DRUGS (4)
  1. TRIAMINIC CHILDRENS NIGHT TIME COLD AND COUGH [Suspect]
     Active Substance: DIPHENHYDRAMINE HYDROCHLORIDE\PHENYLEPHRINE HYDROCHLORIDE
     Indication: PYREXIA
  2. CHILDRENS TYLENOL [Suspect]
     Active Substance: ACETAMINOPHEN
     Dosage: APPROPRIATE AMOUNTS WITHIN THE RECOMMENDED DAILY DOSES, UNK
     Route: 065
     Dates: start: 201005
  3. TRIAMINIC CHILDRENS NIGHT TIME COLD AND COUGH [Suspect]
     Active Substance: DIPHENHYDRAMINE HYDROCHLORIDE\PHENYLEPHRINE HYDROCHLORIDE
     Indication: PAIN
     Dosage: 2 DOSES PER DAY
     Route: 048
     Dates: start: 20100510, end: 20100517
  4. CHILDRENS TYLENOL [Suspect]
     Active Substance: ACETAMINOPHEN
     Indication: ANALGESIC THERAPY
     Dosage: APPROPRIATE AMOUNTS, UNK
     Route: 065

REACTIONS (5)
  - Injury [Unknown]
  - Acute hepatic failure [Unknown]
  - General physical health deterioration [Unknown]
  - Pain [Unknown]
  - Biliary tract disorder [Unknown]
